FAERS Safety Report 10417400 (Version 6)
Quarter: 2015Q1

REPORT INFORMATION
  Report Type: Spontaneous
  Country: US (occurrence: US)
  Receive Date: 20140829
  Receipt Date: 20150312
  Transmission Date: 20150720
  Serious: Yes (Hospitalization, Other)
  Sender: FDA-Public Use
  Company Number: US-AMGEN-USASP2014064304

PATIENT
  Age: 60 Year
  Sex: Female
  Weight: 135 kg

DRUGS (59)
  1. ENBREL [Suspect]
     Active Substance: ETANERCEPT
     Indication: RHEUMATOID ARTHRITIS
     Dosage: 25 MG, 3 TIMES/WK
     Route: 058
  2. BENADRYL [Concomitant]
     Active Substance: DIPHENHYDRAMINE HYDROCHLORIDE
     Dosage: 25 MG, AS NECESSARY
     Route: 048
     Dates: start: 20130611
  3. PREVACID [Concomitant]
     Active Substance: LANSOPRAZOLE
     Dosage: 30 MG, QHS
     Route: 048
     Dates: start: 20130611
  4. ASPIRIN                            /00002701/ [Concomitant]
     Active Substance: ASPIRIN
     Dosage: 162 MG, QD
  5. EXALGO [Concomitant]
     Active Substance: HYDROMORPHONE HYDROCHLORIDE
     Dosage: 8 MG, BID
     Route: 048
     Dates: start: 20130913
  6. ELIQUIS [Concomitant]
     Active Substance: APIXABAN
     Dosage: 5 MG, BID
     Route: 048
  7. NITROGLYCERINE [Concomitant]
     Active Substance: NITROGLYCERIN
     Dosage: 0.4 MG, AS NECESSARY
     Route: 060
  8. ACYCLOVIR                          /00587301/ [Concomitant]
     Active Substance: ACYCLOVIR
     Indication: NAUSEA
     Dosage: 400 MG, BID PRN
     Route: 048
     Dates: start: 20130611
  9. MINOXIDIL. [Concomitant]
     Active Substance: MINOXIDIL
     Dosage: UNK UNK, QD
     Route: 048
     Dates: start: 20130719
  10. ZOFRAN                             /00955301/ [Concomitant]
     Active Substance: ONDANSETRON HYDROCHLORIDE
     Indication: NAUSEA
     Dosage: 4MG/5 ML ORAL SOLUTION PRN
     Route: 048
     Dates: start: 20130611
  11. VITAMIN B12 [Concomitant]
     Active Substance: CYANOCOBALAMIN
     Dosage: 1000 MG, QD
     Route: 048
     Dates: start: 20131101
  12. ASPIRIN                            /00002701/ [Concomitant]
     Active Substance: ASPIRIN
     Dosage: 81 MG, QD
     Route: 048
     Dates: start: 20131101
  13. RENVELA [Concomitant]
     Active Substance: SEVELAMER CARBONATE
     Dosage: 800 MG, TID
  14. TORSEMIDE. [Concomitant]
     Active Substance: TORSEMIDE
     Dosage: 100 MG 1/2 TAB QD
  15. METHOTREXATE [Concomitant]
     Active Substance: METHOTREXATE
     Dosage: UNK
  16. DIOVAN [Concomitant]
     Active Substance: VALSARTAN
     Dosage: UNK
     Dates: start: 201306
  17. OMEGA-3                            /01866101/ [Concomitant]
     Active Substance: OMEGA-3 FATTY ACIDS
     Dosage: 1000 MG, QD
     Route: 048
     Dates: start: 20130611
  18. CYANOCOBALAMIN. [Concomitant]
     Active Substance: CYANOCOBALAMIN
     Dosage: UNK UNK, AS NECESSARY
     Route: 048
     Dates: start: 20130811
  19. DIPHENHYDRAMINE [Concomitant]
     Active Substance: DIPHENHYDRAMINE
     Dosage: 25 MG, QD
     Route: 048
     Dates: start: 20130614
  20. GLUCOSAMINE [Concomitant]
     Active Substance: GLUCOSAMINE
     Dosage: 2 UNK, QD
  21. ACYCLOVIR                          /00587301/ [Concomitant]
     Active Substance: ACYCLOVIR
     Indication: VOMITING
  22. ALDACTONE [Concomitant]
     Active Substance: SPIRONOLACTONE
     Dosage: 50 MG, QD
     Route: 048
     Dates: start: 20130614
  23. OMEGA-3                            /01866101/ [Concomitant]
     Active Substance: OMEGA-3 FATTY ACIDS
     Dosage: UNK UNK, QID
     Dates: start: 20130719
  24. TIZANIDINE (TIZANIDINE) [Concomitant]
     Active Substance: TIZANIDINE
     Dosage: 4 MG CAPSULE DISPENSE 2 CAPSULES
     Route: 048
     Dates: start: 20130611
  25. TIZANIDINE (TIZANIDINE) [Concomitant]
     Active Substance: TIZANIDINE
     Dosage: 4 MG CAPSULE 2 CAPSULES PO QHS
     Route: 048
     Dates: start: 20130719
  26. TYLENOL [Concomitant]
     Active Substance: ACETAMINOPHEN
     Indication: BACK PAIN
     Dosage: 325 MG, QID PRN
     Route: 048
     Dates: start: 20130719
  27. DIOVAN HCT [Concomitant]
     Active Substance: HYDROCHLOROTHIAZIDE\VALSARTAN
     Dosage: 12.5 MG-320 MG, QD
     Route: 048
     Dates: start: 20130611
  28. METOPROLOL TARTRATE. [Concomitant]
     Active Substance: METOPROLOL TARTRATE
     Dosage: 100 MG, UNK
     Route: 048
     Dates: start: 20130702
  29. CLONIDINE. [Concomitant]
     Active Substance: CLONIDINE
     Dosage: 0.3 MG, QID
     Route: 048
     Dates: start: 20130614
  30. ISORDIL [Concomitant]
     Active Substance: ISOSORBIDE DINITRATE
     Dosage: 40 MG 1/2 TABLET MG, BID
     Route: 048
     Dates: start: 20130913
  31. HYDROMORPHONE [Concomitant]
     Active Substance: HYDROMORPHONE
     Dosage: 08 MG, QD
  32. VITAMIN D3 [Concomitant]
     Active Substance: CHOLECALCIFEROL
     Dosage: 1 DF, QD
     Route: 048
  33. CLOPIDOGREL [Concomitant]
     Active Substance: CLOPIDOGREL BISULFATE
     Dosage: 75 MG, QD
  34. ONDANSETROM                        /00955301/ [Concomitant]
     Indication: VOMITING
  35. ALBUTEROL                          /00139501/ [Concomitant]
     Active Substance: ALBUTEROL
     Dosage: UNK, 2.5 MG/3 ML (0.083%) SOLUTION
     Dates: start: 20130611
  36. ZOFRAN                             /00955301/ [Concomitant]
     Active Substance: ONDANSETRON HYDROCHLORIDE
     Indication: VOMITING
     Dosage: 4 MG, TID
     Route: 048
     Dates: start: 20130719
  37. SIMVASTATIN. [Concomitant]
     Active Substance: SIMVASTATIN
     Dosage: 10 MG, QD
     Route: 048
     Dates: start: 20130611
  38. METOPROLOL TARTRATE. [Concomitant]
     Active Substance: METOPROLOL TARTRATE
     Dosage: 100 MG, BID
     Route: 048
     Dates: start: 20130719
  39. COREG [Concomitant]
     Active Substance: CARVEDILOL
     Dosage: 6.25 MG, BID
     Route: 048
     Dates: start: 20130913
  40. PERI-COLACE [Concomitant]
     Active Substance: CASANTHRANOL\DOCUSATE SODIUM
     Dosage: 50 MG-8.6 MG TABLET 2 , QD
     Route: 048
     Dates: start: 20130913
  41. PROTONIX [Concomitant]
     Active Substance: PANTOPRAZOLE SODIUM
     Dosage: 40 MG, QD
  42. ZANAFLEX [Concomitant]
     Active Substance: TIZANIDINE HYDROCHLORIDE
     Dosage: 8 MG, EVERY EVENING
  43. ARAVA [Concomitant]
     Active Substance: LEFLUNOMIDE
     Indication: RHEUMATOID ARTHRITIS
     Dosage: 20 MG, UNK
     Route: 048
     Dates: start: 20130702
  44. NIFEDICAL [Concomitant]
     Dosage: 60 MG, BID
     Route: 048
     Dates: start: 20130719
  45. LIPITOR [Concomitant]
     Active Substance: ATORVASTATIN CALCIUM
     Dosage: 40 MG 2 TABLET, QD
     Route: 048
     Dates: start: 20130913
  46. FOLIC ACID. [Concomitant]
     Active Substance: FOLIC ACID
     Dosage: 1 MG, QD
     Route: 048
     Dates: start: 20130913
  47. DIALYVITE [Concomitant]
     Active Substance: ASCORBIC ACID\BIOTIN\CALCIUM PANTOTHENATE\COBALAMIN\FOLIC ACID\NIACINAMIDE\PYRIDOXINE HYDROCHLORIDE\RIBOFLAVIN\THIAMINE MONONITRATE
     Dosage: 800 MG, QD RENAL VITAMIN
  48. HECTOROL [Concomitant]
     Active Substance: DOXERCALCIFEROL
     Dosage: 2 MG, 3 TIMES/WK
  49. TOPROL XL [Concomitant]
     Active Substance: METOPROLOL SUCCINATE
     Dosage: 50 MG, QD
  50. ARAVA [Concomitant]
     Active Substance: LEFLUNOMIDE
     Dosage: 20 MG, 2 TIMES/WK
     Route: 048
     Dates: start: 20130719
  51. MINOXIDIL. [Concomitant]
     Active Substance: MINOXIDIL
     Dosage: 10 MG, UNK
     Route: 048
     Dates: start: 20130702
  52. AMIODARONE [Concomitant]
     Active Substance: AMIODARONE
     Dosage: 200 MG TABLET 1/2, BID
     Dates: start: 20130913
  53. PREDNISONE. [Concomitant]
     Active Substance: PREDNISONE
     Dosage: 5 MG 3 TABLETS, QD
     Route: 048
     Dates: start: 20130913
  54. NITROLINGUAL [Concomitant]
     Active Substance: NITROGLYCERIN
     Dosage: 0.4 MG, AS NECESSARY
     Dates: start: 20130913
  55. CIPROFLOXACIN. [Concomitant]
     Active Substance: CIPROFLOXACIN
     Dosage: 750 MG, AS NECESSARY
     Route: 048
  56. CYANOCOBALAMIN. [Concomitant]
     Active Substance: CYANOCOBALAMIN
     Dosage: 1000 MUG, QD
     Route: 048
     Dates: start: 20130614
  57. LISINOPRIL. [Concomitant]
     Active Substance: LISINOPRIL
     Dosage: 20 MG, BID
     Route: 048
     Dates: start: 20130913
  58. NICOTINE. [Concomitant]
     Active Substance: NICOTINE
     Dosage: UNK
  59. ONDANSETROM                        /00955301/ [Concomitant]
     Indication: NAUSEA
     Dosage: 1 TO 2 AS NEEDED
     Route: 060

REACTIONS (120)
  - Essential hypertension [Unknown]
  - Pulmonary oedema [Unknown]
  - Haemangioma of liver [Unknown]
  - Mobility decreased [Unknown]
  - Lupus-like syndrome [Unknown]
  - Anaemia [Unknown]
  - Bronchitis [Unknown]
  - Hiatus hernia [Unknown]
  - Rash [Unknown]
  - Low density lipoprotein abnormal [Unknown]
  - Anxiety [Unknown]
  - Fluid imbalance [Unknown]
  - Vitamin D deficiency [Unknown]
  - Thrombotic microangiopathy [Unknown]
  - Acute respiratory failure [Unknown]
  - Arteriosclerosis coronary artery [Unknown]
  - Iron deficiency anaemia [Unknown]
  - Hypokalaemia [Unknown]
  - Hypercoagulation [Unknown]
  - Blood pressure increased [Unknown]
  - Foreign body [Unknown]
  - Obesity [Unknown]
  - Urinary tract infection [Unknown]
  - Streptococcal infection [Unknown]
  - Weight decreased [Unknown]
  - Dry mouth [Unknown]
  - Bone density abnormal [Unknown]
  - Oesophageal spasm [Unknown]
  - Back pain [Unknown]
  - Dermatitis [Unknown]
  - Peripheral venous disease [Unknown]
  - Diverticulitis [Unknown]
  - Nodal arrhythmia [Unknown]
  - Electrocardiogram QT prolonged [Unknown]
  - Blood magnesium abnormal [Unknown]
  - Sjogren^s syndrome [Unknown]
  - Medical device complication [Unknown]
  - Hypotension [Unknown]
  - Accident [Unknown]
  - Sinus node dysfunction [Unknown]
  - Activities of daily living impaired [Unknown]
  - Thrombocytopenia [Unknown]
  - Gastroenteritis [Unknown]
  - Asthma [Unknown]
  - Upper-airway cough syndrome [Unknown]
  - Migraine [Unknown]
  - Osteoarthritis [Unknown]
  - Blood homocysteine increased [Unknown]
  - High density lipoprotein abnormal [Unknown]
  - Hypercholesterolaemia [Unknown]
  - Pain in extremity [Unknown]
  - Nephropathy toxic [Unknown]
  - Retinopathy hypertensive [Unknown]
  - Hyperparathyroidism secondary [Unknown]
  - Pyrexia [Unknown]
  - QRS axis abnormal [Unknown]
  - Cardiac failure congestive [Unknown]
  - Osteomyelitis [Unknown]
  - Breast calcifications [Unknown]
  - Peripheral swelling [Not Recovered/Not Resolved]
  - Renal failure [Unknown]
  - Glomerulonephritis chronic [Unknown]
  - Myocardial ischaemia [Unknown]
  - Atrial fibrillation [Unknown]
  - Renal haemorrhage [Unknown]
  - Gastritis erosive [Unknown]
  - Diverticulum [Unknown]
  - Blood disorder [Unknown]
  - Glucose tolerance impaired [Unknown]
  - Insomnia [Unknown]
  - Ecchymosis [Unknown]
  - Pain [Unknown]
  - Contusion [Unknown]
  - Sinusitis [Unknown]
  - Atrioventricular block [Unknown]
  - Vomiting [Unknown]
  - Catheter site inflammation [Unknown]
  - Upper respiratory tract infection [Unknown]
  - Device related sepsis [Unknown]
  - Gastrooesophageal reflux disease [Unknown]
  - Paraesthesia [Unknown]
  - Oral herpes [Unknown]
  - Influenza [Unknown]
  - Nephrotic syndrome [Unknown]
  - Acute myocardial infarction [Unknown]
  - Lung infiltration [Unknown]
  - Gastrointestinal haemorrhage [Unknown]
  - Pericardial effusion [Unknown]
  - Nausea [Unknown]
  - Renal cyst [Unknown]
  - Communication disorder [Unknown]
  - Mental status changes [Unknown]
  - Staphylococcal sepsis [Unknown]
  - Endocarditis staphylococcal [Unknown]
  - Pneumonia [Unknown]
  - Haemorrhoids [Unknown]
  - Large intestine polyp [Unknown]
  - Liver function test abnormal [Unknown]
  - Restless legs syndrome [Unknown]
  - Systemic inflammatory response syndrome [Unknown]
  - Metabolic acidosis [Unknown]
  - Sinus bradycardia [Unknown]
  - Nephrogenic anaemia [Unknown]
  - Hyponatraemia [Unknown]
  - Hyperkalaemia [Unknown]
  - Hypertensive heart disease [Unknown]
  - Pulmonary hypertension [Unknown]
  - Rheumatoid arthritis [Unknown]
  - Sleep apnoea syndrome [Unknown]
  - Meniscus injury [Unknown]
  - Blood creatinine increased [Unknown]
  - Interstitial lung disease [Unknown]
  - Extradural abscess [Unknown]
  - Thyroid disorder [Unknown]
  - Hypoaesthesia [Unknown]
  - Malnutrition [Unknown]
  - Decreased appetite [Unknown]
  - Asthenia [Unknown]
  - Spinal osteoarthritis [Unknown]
  - Alanine aminotransferase increased [Unknown]

NARRATIVE: CASE EVENT DATE: 2013
